FAERS Safety Report 21467529 (Version 1)
Quarter: 2022Q4

REPORT INFORMATION
  Report Type: Spontaneous
  Country: CZ (occurrence: CZ)
  Receive Date: 20221017
  Receipt Date: 20221017
  Transmission Date: 20230113
  Serious: Yes (Life-Threatening, Hospitalization, Other)
  Sender: FDA-Public Use
  Company Number: CZ-CELGENE-CZE-20220105528

PATIENT
  Age: 55 Year
  Sex: Male

DRUGS (17)
  1. DEXAMETHASONE [Suspect]
     Active Substance: DEXAMETHASONE
     Indication: Plasma cell myeloma
     Dosage: FREQUENCY TEXT: NOT PROVIDED?40 MILLIGRAM
     Route: 065
     Dates: start: 20210512, end: 20211222
  2. DEXAMETHASONE [Suspect]
     Active Substance: DEXAMETHASONE
     Dosage: 40 MG, QOW
     Route: 065
     Dates: start: 20211222, end: 20211222
  3. LENALIDOMIDE [Suspect]
     Active Substance: LENALIDOMIDE
     Indication: Plasma cell myeloma
     Dosage: FREQUENCY TEXT: NOT PROVIDED?25 MILLIGRAM
     Route: 065
     Dates: start: 20210512, end: 20211222
  4. CARFILZOMIB [Suspect]
     Active Substance: CARFILZOMIB
     Indication: Plasma cell myeloma
     Dosage: FREQUENCY TEXT: NOT PROVIDED?43 MILLIGRAM
     Route: 065
     Dates: start: 20210512, end: 20211222
  5. CARFILZOMIB [Suspect]
     Active Substance: CARFILZOMIB
     Route: 042
     Dates: start: 20210512, end: 20210512
  6. CYCLOPHOSPHAMIDE [Suspect]
     Active Substance: CYCLOPHOSPHAMIDE
     Indication: Plasma cell myeloma
     Dosage: FREQUENCY TEXT: NOT PROVIDED?5250 MILLIGRAM
     Route: 065
     Dates: start: 20210927, end: 20210927
  7. MELPHALAN [Suspect]
     Active Substance: MELPHALAN
     Indication: Plasma cell myeloma
     Dosage: FREQUENCY TEXT: NOT PROVIDED?413 MILLIGRAM
     Route: 065
     Dates: start: 20211104, end: 20211104
  8. CEFUROXIME AXETIL [Concomitant]
     Active Substance: CEFUROXIME AXETIL
     Indication: C-reactive protein increased
     Dosage: UNK
     Route: 065
     Dates: start: 20210721, end: 20210726
  9. NEVANAC [Concomitant]
     Active Substance: NEPAFENAC
     Indication: Surgery
     Dosage: UNK
     Route: 065
     Dates: start: 20210803
  10. TOBRADEX [Concomitant]
     Active Substance: DEXAMETHASONE\TOBRAMYCIN
     Indication: Surgery
     Dosage: UNK
     Route: 065
     Dates: start: 20210803
  11. ZOFRAN [Concomitant]
     Active Substance: ONDANSETRON HYDROCHLORIDE
     Indication: Prophylaxis
     Dosage: UNK
     Route: 065
     Dates: start: 20210512
  12. BISULEPIN [Concomitant]
     Active Substance: BISULEPIN
     Indication: Prophylaxis
     Dosage: UNK
     Route: 065
     Dates: start: 20210512
  13. OMEPRAZOLE [Concomitant]
     Active Substance: OMEPRAZOLE
     Indication: Prophylaxis
     Dosage: FREQUENCY TEXT: NOT PROVIDED
     Route: 065
     Dates: start: 20210512
  14. NADROPARIN CALCIUM [Concomitant]
     Active Substance: NADROPARIN CALCIUM
     Indication: Prophylaxis
     Dosage: FREQUENCY TEXT: NOT PROVIDED
     Route: 065
     Dates: start: 20210512
  15. ZOVIRAX [Concomitant]
     Active Substance: ACYCLOVIR
     Indication: Prophylaxis
     Dosage: FREQUENCY TEXT: NOT PROVIDED
     Route: 065
     Dates: start: 20210512, end: 20210512
  16. ZOFRAN [Concomitant]
     Active Substance: ONDANSETRON HYDROCHLORIDE
     Indication: Prophylaxis
     Dosage: FREQUENCY TEXT: NOT PROVIDED
     Route: 065
     Dates: start: 20210512
  17. ACETAMINOPHEN [Concomitant]
     Active Substance: ACETAMINOPHEN
     Indication: Prophylaxis
     Dosage: FREQUENCY TEXT: NOT PROVIDED
     Route: 065
     Dates: start: 20210512

REACTIONS (4)
  - Pneumonia [Recovered/Resolved with Sequelae]
  - Pulmonary embolism [Recovered/Resolved with Sequelae]
  - Haemolytic uraemic syndrome [Recovered/Resolved with Sequelae]
  - Infection [Recovered/Resolved]

NARRATIVE: CASE EVENT DATE: 20211223
